FAERS Safety Report 5692309-9 (Version None)
Quarter: 2008Q1

REPORT INFORMATION
  Report Type: 
  Country: None (occurrence: None)
  Receive Date: 20080331
  Receipt Date: 20080314
  Transmission Date: 20080703
  Serious: Yes (Other)
  Sender: FDA-Public Use
  Company Number: 8031039

PATIENT
  Age: 7 Year
  Sex: Male

DRUGS (1)
  1. METHYLPHENIDATE HCL [Suspect]
     Indication: ATTENTION DEFICIT/HYPERACTIVITY DISORDER
     Dosage: 20 MG 1/D PO
     Route: 048
     Dates: start: 20080218, end: 20080303

REACTIONS (2)
  - EXCESSIVE EYE BLINKING [None]
  - TIC [None]
